FAERS Safety Report 15196912 (Version 3)
Quarter: 2019Q2

REPORT INFORMATION
  Report Type: Spontaneous
  Country: CA (occurrence: CA)
  Receive Date: 20180725
  Receipt Date: 20190415
  Transmission Date: 20190711
  Serious: Yes (Other)
  Sender: FDA-Public Use
  Company Number: CA-PFIZER INC-2018297264

PATIENT
  Age: 78 Year
  Sex: Female

DRUGS (11)
  1. PANTOPRAZOLE [Suspect]
     Active Substance: PANTOPRAZOLE
     Indication: GASTROOESOPHAGEAL REFLUX DISEASE
     Dosage: ONE DOSAGE FORM ONCE DAILY
     Route: 048
     Dates: start: 1997
  2. XOLAIR [Suspect]
     Active Substance: OMALIZUMAB
     Indication: ASTHMA
     Dosage: UNK (POWDER AND SOLVENT FOR CUTANEOUS SOLUTION)
     Route: 058
  3. TOLTERODINE [Concomitant]
     Active Substance: TOLTERODINE
     Indication: HYPERTONIC BLADDER
     Dosage: UNK, BID
     Route: 048
     Dates: start: 1998
  4. VENTOLIN [Concomitant]
     Active Substance: ALBUTEROL SULFATE
     Indication: ASTHMA
     Dosage: UNK
     Route: 055
     Dates: start: 2012
  5. XOLAIR [Suspect]
     Active Substance: OMALIZUMAB
     Dosage: 225 MILLIGRAMS, Q2WEEKS (POWDER AND SOLVENT FOR CUTANEOUS SOLUTION)
     Route: 058
     Dates: start: 20170920
  6. SPIRIVA [Concomitant]
     Active Substance: TIOTROPIUM BROMIDE MONOHYDRATE
     Indication: ASTHMA
     Dosage: UNK, QD
     Route: 055
     Dates: start: 2016
  7. DOVONEX [Concomitant]
     Active Substance: CALCIPOTRIENE
     Indication: FACIAL PAIN
     Dosage: UNK, QD
     Route: 061
     Dates: start: 2007
  8. OMNARIS [Concomitant]
     Active Substance: CICLESONIDE
     Indication: RHINITIS ALLERGIC
     Dosage: UNK UNK, QD
     Route: 055
     Dates: start: 2016
  9. SINGULAIR [Concomitant]
     Active Substance: MONTELUKAST SODIUM
     Indication: ASTHMA
     Dosage: UNK, QD
     Route: 048
     Dates: start: 2012
  10. ZENHALE [Concomitant]
     Active Substance: FORMOTEROL FUMARATE\MOMETASONE FUROATE
     Indication: ASTHMA
     Dosage: UNK UNK, BID
     Route: 055
     Dates: start: 2012
  11. XOLAIR [Suspect]
     Active Substance: OMALIZUMAB
     Dosage: 225 MILLIGRAMS, 2/WEEK (POWDER AND SOLVENT FOR CUTANEOUS SOLUTION)
     Route: 058
     Dates: start: 20170404

REACTIONS (6)
  - Cough [Not Recovered/Not Resolved]
  - Blood pressure systolic increased [Unknown]
  - Productive cough [Not Recovered/Not Resolved]
  - Nasopharyngitis [Not Recovered/Not Resolved]
  - Forced expiratory volume decreased [Unknown]
  - Iliac artery occlusion [Unknown]

NARRATIVE: CASE EVENT DATE: 20170418
